FAERS Safety Report 9674727 (Version 1)
Quarter: 2013Q4

REPORT INFORMATION
  Report Type: Report from Study
  Country: CA (occurrence: CA)
  Receive Date: 20131107
  Receipt Date: 20131107
  Transmission Date: 20140711
  Serious: Yes (Other)
  Sender: FDA-Public Use
  Company Number: CA-JNJFOC-20131100930

PATIENT
  Age: 52 Year
  Sex: Male
  Weight: 85 kg

DRUGS (3)
  1. REMICADE [Suspect]
     Indication: CROHN^S DISEASE
     Route: 042
     Dates: start: 20110107
  2. REMICADE [Suspect]
     Indication: CROHN^S DISEASE
     Route: 042
     Dates: start: 2013
  3. METHOTREXATE [Concomitant]
     Route: 058

REACTIONS (2)
  - Intestinal obstruction [Recovered/Resolved]
  - Gastrointestinal inflammation [Recovered/Resolved]
